FAERS Safety Report 8495570-0 (Version None)
Quarter: 2012Q3

REPORT INFORMATION
  Report Type: 
  Country: None (occurrence: None)
  Receive Date: 20120709
  Receipt Date: 20120706
  Transmission Date: 20120928
  Serious: Yes (Hospitalization, Other)
  Sender: FDA-Public Use
  Company Number: US-ROCHE-1065864

PATIENT
  Sex: Male
  Weight: 74.456 kg

DRUGS (5)
  1. XELODA [Suspect]
     Indication: METASTATIC GASTRIC CANCER
     Route: 048
     Dates: start: 20120405, end: 20120510
  2. XELODA [Suspect]
     Route: 048
     Dates: start: 20120614
  3. TAXOTERE [Concomitant]
     Indication: METASTATIC GASTRIC CANCER
     Route: 042
     Dates: start: 20120401
  4. CORONAL [Concomitant]
     Indication: FUNGAL INFECTION
     Route: 061
     Dates: start: 20120501
  5. MONISTAT [Concomitant]
     Indication: FUNGAL INFECTION
     Route: 061
     Dates: start: 20120501

REACTIONS (11)
  - ERYTHEMA [None]
  - PYREXIA [None]
  - FURUNCLE [None]
  - BLOOD COUNT ABNORMAL [None]
  - RASH [None]
  - FUNGAL SKIN INFECTION [None]
  - FATIGUE [None]
  - ALOPECIA [None]
  - DYSGEUSIA [None]
  - SKIN DISORDER [None]
  - NASAL ABSCESS [None]
